FAERS Safety Report 10235247 (Version 1)
Quarter: 2014Q1

REPORT INFORMATION
  Report Type: Spontaneous
  Country: US (occurrence: None)
  Receive Date: 20140306
  Receipt Date: 20140306
  Transmission Date: 20141002
  Serious: Yes (Other)
  Sender: FDA-Public Use
  Company Number: 163-21880-13053786

PATIENT
  Age: 64 Year
  Sex: Male

DRUGS (3)
  1. REVLIMID [Suspect]
     Indication: MYELODYSPLASTIC SYNDROME
     Route: 048
     Dates: start: 20120118
  2. ESSENTIAL MEGA (MEBUTAMATE) [Concomitant]
  3. CALCIUM CITRATE-VITAMINS (CALCIUM CITRATE) [Concomitant]

REACTIONS (4)
  - Neutrophil count decreased [None]
  - Weight decreased [None]
  - Diarrhoea [None]
  - Cough [None]
